FAERS Safety Report 5424812-0 (Version None)
Quarter: 2007Q3

REPORT INFORMATION
  Report Type: 
  Country: None (occurrence: None)
  Receive Date: 20070824
  Receipt Date: 20070821
  Transmission Date: 20080115
  Serious: Yes (Hospitalization)
  Sender: FDA-Public Use
  Company Number: JP-BRISTOL-MYERS SQUIBB COMPANY-13864020

PATIENT
  Age: 63 Year
  Sex: Female

DRUGS (10)
  1. TAXOL [Suspect]
     Indication: NON-SMALL CELL LUNG CANCER
     Route: 041
     Dates: start: 20070710, end: 20070803
  2. PARAPLATIN [Suspect]
     Indication: NON-SMALL CELL LUNG CANCER
     Route: 041
     Dates: start: 20070710, end: 20070803
  3. AVASTIN [Suspect]
     Indication: NON-SMALL CELL LUNG CANCER
     Route: 041
     Dates: start: 20070710
  4. FOSAMAC [Concomitant]
     Route: 048
  5. ALFAROL [Concomitant]
     Route: 048
  6. LEVOFLOXACIN [Concomitant]
     Route: 048
     Dates: start: 20070723, end: 20070728
  7. MUCOSTA [Concomitant]
     Route: 048
     Dates: start: 20070723, end: 20070728
  8. LENDORMIN [Concomitant]
     Route: 048
  9. APRICOT KERNEL WATER [Concomitant]
     Route: 048
     Dates: start: 20070704
  10. BROCIN [Concomitant]
     Route: 048
     Dates: start: 20070704

REACTIONS (1)
  - HAEMOPTYSIS [None]
